FAERS Safety Report 26066314 (Version 1)
Quarter: 2025Q4

REPORT INFORMATION
  Report Type: Spontaneous
  Country: EU (occurrence: EU)
  Receive Date: 20251119
  Receipt Date: 20251119
  Transmission Date: 20260117
  Serious: Yes (Hospitalization, Other)
  Sender: INCYTE
  Company Number: EU-002147023-NVSC2025LT175311

PATIENT
  Age: 43 Year

DRUGS (3)
  1. RUXOLITINIB [Suspect]
     Active Substance: RUXOLITINIB
     Indication: Chronic graft versus host disease
     Dosage: 5 MG, BID
  2. CYCLOSPORINE [Concomitant]
     Active Substance: CYCLOSPORINE
     Indication: Chronic graft versus host disease
     Dosage: UNK
     Route: 065
  3. METHYLPREDNISOLONE [Concomitant]
     Active Substance: METHYLPREDNISOLONE
     Indication: Chronic graft versus host disease
     Dosage: UNK
     Route: 065

REACTIONS (13)
  - Ulcerative keratitis [Not Recovered/Not Resolved]
  - Iridocyclitis [Not Recovered/Not Resolved]
  - Endophthalmitis [Not Recovered/Not Resolved]
  - Transaminases abnormal [Unknown]
  - Thrombocytopenia [Not Recovered/Not Resolved]
  - Vitreous haemorrhage [Unknown]
  - Leukopenia [Unknown]
  - Haematuria [Unknown]
  - Pyrexia [Unknown]
  - Dysuria [Unknown]
  - Dry eye [Unknown]
  - Haemoglobin decreased [Unknown]
  - Visual impairment [Unknown]
